FAERS Safety Report 4356272-5 (Version None)
Quarter: 2004Q2

REPORT INFORMATION
  Report Type: 
  Country: None (occurrence: None)
  Receive Date: 20040511
  Receipt Date: 20040427
  Transmission Date: 20050107
  Serious: Yes (Other)
  Sender: FDA-Public Use
  Company Number: NZ-JNJFOC-20040500005

PATIENT
  Age: 30 Year
  Sex: Male

DRUGS (1)
  1. RISPERDAL [Suspect]
     Indication: SCHIZOPHRENIA
     Dosage: START DATE: 4-5 YEARS AGO

REACTIONS (5)
  - APATHY [None]
  - BLOOD IRON INCREASED [None]
  - MENTAL DISORDER [None]
  - MOOD SWINGS [None]
  - THERAPEUTIC RESPONSE DECREASED [None]
